FAERS Safety Report 19620056 (Version 1)
Quarter: 2021Q3

REPORT INFORMATION
  Report Type: Spontaneous
  Country: US (occurrence: US)
  Receive Date: 20210727
  Receipt Date: 20210727
  Transmission Date: 20211014
  Serious: No
  Sender: FDA-Public Use
  Company Number: None

PATIENT
  Age: 62 Year
  Sex: Female
  Weight: 119.25 kg

DRUGS (1)
  1. INVOKANA [Suspect]
     Active Substance: CANAGLIFLOZIN
     Indication: TYPE 2 DIABETES MELLITUS
     Route: 048
     Dates: start: 20210701, end: 20210711

REACTIONS (6)
  - Tremor [None]
  - Vomiting [None]
  - Feeling abnormal [None]
  - Pruritus genital [None]
  - Dizziness [None]
  - Abdominal pain upper [None]

NARRATIVE: CASE EVENT DATE: 20210711
